FAERS Safety Report 10549448 (Version 3)
Quarter: 2015Q2

REPORT INFORMATION
  Report Type: Spontaneous
  Country: US (occurrence: None)
  Receive Date: 20141020
  Receipt Date: 20150420
  Transmission Date: 20150821
  Serious: Yes (Other)
  Sender: FDA-Public Use
  Company Number: AEGR000731

PATIENT
  Age: 52 Year
  Sex: Female
  Weight: 80.7 kg

DRUGS (3)
  1. VITAMIN E (TOCOPHERYL ACETATE) [Concomitant]
  2. JUXTAPID [Suspect]
     Active Substance: LOMITAPIDE MESYLATE
     Indication: TYPE IIA HYPERLIPIDAEMIA
     Route: 048
     Dates: start: 20130423, end: 20130827
  3. CRESTOR [Concomitant]
     Active Substance: ROSUVASTATIN CALCIUM

REACTIONS (5)
  - Malaise [None]
  - Alanine aminotransferase increased [None]
  - Aspartate aminotransferase increased [None]
  - Nausea [None]
  - Hepatic enzyme increased [None]

NARRATIVE: CASE EVENT DATE: 201408
